FAERS Safety Report 9685531 (Version 1)
Quarter: 2013Q4

REPORT INFORMATION
  Report Type: Spontaneous
  Country: US (occurrence: US)
  Receive Date: 20131113
  Receipt Date: 20131113
  Transmission Date: 20140711
  Serious: Yes (Disabling)
  Sender: FDA-Public Use
  Company Number: US-AMGEN-USASP2013079729

PATIENT
  Sex: 0
  Weight: 61.22 kg

DRUGS (1)
  1. ENBREL [Suspect]
     Indication: PRODUCT USED FOR UNKNOWN INDICATION
     Dosage: 50 MG, QWK
     Route: 058
     Dates: start: 20031101

REACTIONS (3)
  - Productive cough [Not Recovered/Not Resolved]
  - Increased upper airway secretion [Unknown]
  - Plantar fasciitis [Not Recovered/Not Resolved]
